FAERS Safety Report 5061268-4 (Version None)
Quarter: 2006Q3

REPORT INFORMATION
  Report Type: 
  Country: None (occurrence: None)
  Receive Date: 20060720
  Receipt Date: 20060707
  Transmission Date: 20061208
  Serious: Yes (Death, Life-Threatening, Hospitalization)
  Sender: FDA-Public Use
  Company Number: 2006079833

PATIENT
  Age: 75 Year
  Sex: Female
  Weight: 61 kg

DRUGS (11)
  1. SUTENT [Suspect]
     Indication: RENAL CELL CARCINOMA STAGE UNSPECIFIED
     Dosage: SEE IMAGE
     Route: 048
     Dates: start: 20060413, end: 20060511
  2. SUTENT [Suspect]
     Indication: RENAL CELL CARCINOMA STAGE UNSPECIFIED
     Dosage: SEE IMAGE
     Route: 048
     Dates: start: 20060524, end: 20060616
  3. ALL OTHER THEAPEUTIC PRODUCTS [Concomitant]
  4. OTHER ANTIDIARRHOEALS [Concomitant]
  5. ALFACALCIDOL (ALFACALCIDOL) [Concomitant]
  6. LEVOTHYROXINE SODIUM [Concomitant]
  7. SIMVASTATIN [Concomitant]
  8. VERAPAMIL [Concomitant]
  9. NOVALGIN (METAMIZOLE SODIUM) [Concomitant]
  10. CARNIGEN FORTE (OXILOFRINE HYDROCHLORIDE) [Concomitant]
  11. TAVOR (LORAZEPAM) [Concomitant]

REACTIONS (7)
  - ANAEMIA [None]
  - GENERAL PHYSICAL HEALTH DETERIORATION [None]
  - MALIGNANT NEOPLASM OF PLEURA [None]
  - MALIGNANT NEOPLASM PROGRESSION [None]
  - MALIGNANT PERITONEAL NEOPLASM [None]
  - PLEURAL EFFUSION [None]
  - THROMBOCYTOPENIA [None]
